FAERS Safety Report 13211660 (Version 1)
Quarter: 2017Q1

REPORT INFORMATION
  Report Type: Spontaneous
  Country: US (occurrence: US)
  Receive Date: 20170209
  Receipt Date: 20170209
  Transmission Date: 20170428
  Serious: No
  Sender: FDA-Public Use
  Company Number: US-ALLERGAN-1656674US

PATIENT
  Age: 52 Year
  Sex: Female
  Weight: 74.83 kg

DRUGS (3)
  1. BOTOX COSMETIC [Suspect]
     Active Substance: ONABOTULINUMTOXINA
     Indication: SKIN WRINKLING
  2. BOTOX COSMETIC [Suspect]
     Active Substance: ONABOTULINUMTOXINA
     Indication: SKIN WRINKLING
     Dosage: 25 UNITS, SINGLE
     Route: 030
     Dates: start: 20160202, end: 20160202
  3. BOTOX COSMETIC [Suspect]
     Active Substance: ONABOTULINUMTOXINA
     Indication: SKIN WRINKLING
     Dosage: 17 UNITS, SINGLE
     Route: 030
     Dates: start: 20160202, end: 20160202

REACTIONS (5)
  - Off label use [Unknown]
  - Rash [Recovered/Resolved]
  - Headache [Recovering/Resolving]
  - Urticaria [Recovered/Resolved]
  - Reaction to preservatives [Unknown]

NARRATIVE: CASE EVENT DATE: 20160203
